FAERS Safety Report 21831947 (Version 1)
Quarter: 2023Q1

REPORT INFORMATION
  Report Type: Spontaneous
  Country: US (occurrence: None)
  Receive Date: 20230106
  Receipt Date: 20230106
  Transmission Date: 20230417
  Serious: Yes (Life-Threatening, Other)
  Sender: FDA-Public Use
  Company Number: None

PATIENT
  Age: 69 Year
  Sex: Female
  Weight: 54.45 kg

DRUGS (5)
  1. METFORMIN [Suspect]
     Active Substance: METFORMIN HYDROCHLORIDE
     Indication: Glucose tolerance impaired
     Dosage: FREQUENCY : TWICE A DAY;?
     Route: 048
     Dates: start: 20211123
  2. CRESTOR [Concomitant]
     Active Substance: ROSUVASTATIN CALCIUM
     Dates: start: 20211123
  3. OLMESARTAN [Concomitant]
     Active Substance: OLMESARTAN
     Dates: start: 20211123
  4. IBUPROFEN [Concomitant]
     Active Substance: IBUPROFEN
     Dates: start: 20211123
  5. TERBINAFINE [Concomitant]
     Active Substance: TERBINAFINE
     Dates: start: 20211123, end: 20211223

REACTIONS (1)
  - Product contamination [None]

NARRATIVE: CASE EVENT DATE: 20220710
